FAERS Safety Report 5168242-8 (Version None)
Quarter: 2006Q4

REPORT INFORMATION
  Report Type: 
  Country: None (occurrence: None)
  Receive Date: 20061208
  Receipt Date: 20061204
  Transmission Date: 20070319
  Serious: Yes (Hospitalization)
  Sender: FDA-Public Use
  Company Number: NL-GLAXOSMITHKLINE-B0449682A

PATIENT
  Age: 23 Year
  Sex: Female

DRUGS (1)
  1. PAROXETINE HCL [Suspect]
     Indication: BORDERLINE PERSONALITY DISORDER
     Dosage: 50MG PER DAY
     Dates: start: 20061101

REACTIONS (2)
  - ABDOMINAL PAIN [None]
  - CONSTIPATION [None]
